FAERS Safety Report 4649729-0 (Version None)
Quarter: 2005Q2

REPORT INFORMATION
  Report Type: 
  Country: None (occurrence: None)
  Receive Date: 20050427
  Receipt Date: 20050415
  Transmission Date: 20051028
  Serious: No
  Sender: FDA-Public Use
  Company Number: 05P-167-0297667-00

PATIENT
  Age: 63 Year
  Sex: Male

DRUGS (6)
  1. WARFARIN SODIUM [Suspect]
     Indication: PULMONARY EMBOLISM
     Dosage: 4 MG, 1 IN 1 D, ORAL
     Route: 048
     Dates: start: 20050101
  2. PIOGLITAZONE HCL [Suspect]
     Dosage: 15 MG, 1 IN 1 D, ORAL
     Route: 048
     Dates: start: 20020101
  3. METFORMIN HCL [Suspect]
     Dosage: 500 MG, 1 IN 1 D, ORAL
     Route: 048
     Dates: start: 19960101
  4. TELMISARTAN (TELMISARTAN) [Suspect]
     Dosage: 40 MG, 1 IN 1 D, ORAL
     Route: 048
     Dates: start: 20020101
  5. ATORVASTATIN CALCIUM [Suspect]
     Dosage: 20 MG, 1 IN 1 D, ORAL
     Route: 048
     Dates: start: 20020101
  6. QUININE SULFATE [Suspect]
     Dosage: 300 MG, 1 IN 1 D, ORAL
     Route: 048
     Dates: start: 20000101

REACTIONS (4)
  - DRUG INTERACTION [None]
  - NO REACTION ON PREVIOUS EXPOSURE TO DRUG [None]
  - PULMONARY EMBOLISM [None]
  - RASH ERYTHEMATOUS [None]
